FAERS Safety Report 24988765 (Version 3)
Quarter: 2025Q1

REPORT INFORMATION
  Report Type: Spontaneous
  Country: CA (occurrence: CA)
  Receive Date: 20250220
  Receipt Date: 20250303
  Transmission Date: 20250409
  Serious: Yes (Congenital Anomaly, Other)
  Sender: CELLTRION
  Company Number: CA-PFIZER INC-202500035005

PATIENT

DRUGS (2)
  1. INFLECTRA [Suspect]
     Active Substance: INFLIXIMAB-DYYB
     Indication: Colitis ulcerative
     Route: 042
     Dates: start: 20240729
  2. INFLECTRA [Suspect]
     Active Substance: INFLIXIMAB-DYYB
     Route: 042
     Dates: start: 20250102

REACTIONS (8)
  - Fall [Unknown]
  - Inflammation [Unknown]
  - Thrombosis [Unknown]
  - Localised infection [Recovering/Resolving]
  - Skin ulcer [Unknown]
  - Peripheral swelling [Unknown]
  - Feeling hot [Unknown]
  - Skin discolouration [Unknown]

NARRATIVE: CASE EVENT DATE: 20250205
